FAERS Safety Report 8353046-5 (Version None)
Quarter: 2012Q2

REPORT INFORMATION
  Report Type: 
  Country: None (occurrence: None)
  Receive Date: 20120511
  Receipt Date: 20120508
  Transmission Date: 20120825
  Serious: Yes (Hospitalization)
  Sender: FDA-Public Use
  Company Number: IT-SANOFI-AVENTIS-2012SA023839

PATIENT
  Age: 1 Month
  Sex: Male

DRUGS (1)
  1. LASIX [Suspect]
     Route: 065
     Dates: start: 20120316, end: 20120318

REACTIONS (2)
  - DECREASED APPETITE [None]
  - SLOW RESPONSE TO STIMULI [None]
